FAERS Safety Report 7815644-4 (Version None)
Quarter: 2011Q4

REPORT INFORMATION
  Report Type: 
  Country: None (occurrence: None)
  Receive Date: 20111007
  Receipt Date: 20111005
  Transmission Date: 20120403
  Serious: Yes (Other)
  Sender: FDA-Public Use
  Company Number: 2011029179

PATIENT
  Age: 50 Year
  Sex: Female
  Weight: 184 kg

DRUGS (39)
  1. CELEXA [Concomitant]
  2. FISH OIL (FISH OIL) [Concomitant]
  3. CALCIUM + D (OYSTER SHELL CALCIUM WITH VITAMIN D/01675501/) [Concomitant]
  4. HIZENTRA [Suspect]
     Indication: IMMUNODEFICIENCY COMMON VARIABLE
     Dosage: SEE IMAGE
     Route: 058
     Dates: start: 20110630
  5. HIZENTRA [Suspect]
     Indication: IMMUNODEFICIENCY COMMON VARIABLE
     Dosage: SEE IMAGE
     Route: 058
     Dates: start: 20110719
  6. HIZENTRA [Suspect]
     Indication: IMMUNODEFICIENCY COMMON VARIABLE
     Dosage: SEE IMAGE
     Route: 058
     Dates: start: 20101103
  7. IBUPROFEN [Concomitant]
  8. CELEBREX [Concomitant]
  9. PRAVASTATIN [Concomitant]
  10. VICODIN [Concomitant]
  11. OMEPRAZOLE [Concomitant]
  12. FOSAMAX [Concomitant]
  13. SINGULAIR [Concomitant]
  14. KLONOPIN [Concomitant]
  15. PROAIR (PROCATEROL HYDROCHLORIDE) [Concomitant]
  16. RANITIDINE HYDROCHLORIDE [Concomitant]
  17. OXYBUTYNIN [Concomitant]
  18. CIPRO [Concomitant]
  19. ASCORBIC ACID [Concomitant]
  20. CHLORZOXAZONE [Concomitant]
  21. PRENATAL (PRENATAL /00231801/) [Concomitant]
  22. SYMBICORT [Concomitant]
  23. ALBUTEROL [Concomitant]
  24. HIZENTRA [Suspect]
  25. VITAMIN B12 [Concomitant]
  26. PREMPRO (PROVELLA-14) [Concomitant]
  27. XYZAL [Concomitant]
  28. THEOPHYLLINE [Concomitant]
  29. TREXIMET (SUMATRIPTAN) [Concomitant]
  30. PROMETHAZINE [Concomitant]
  31. FLONASE [Concomitant]
  32. PREDNISONE TAB [Concomitant]
  33. TESSALON [Concomitant]
  34. MAGNESIUM (MAGNESIUM) [Concomitant]
  35. ATARAX [Concomitant]
  36. BACTRIM DS [Concomitant]
  37. SEROQUEL XR (QUETIAPINE) [Concomitant]
  38. DIOVAN [Concomitant]
  39. GABAPENTIN [Concomitant]

REACTIONS (2)
  - SINUSITIS [None]
  - KIDNEY INFECTION [None]
